FAERS Safety Report 6813616-X (Version None)
Quarter: 2010Q3

REPORT INFORMATION
  Report Type: 
  Country: None (occurrence: None)
  Receive Date: 20100701
  Receipt Date: 20100625
  Transmission Date: 20110219
  Serious: Yes (Other)
  Sender: FDA-Public Use
  Company Number: US-PFIZER INC-2010079478

PATIENT
  Age: 54 Year
  Sex: Female

DRUGS (9)
  1. AZITHROMYCIN [Suspect]
     Indication: PNEUMONIA
     Dosage: 500 MG, 1X/DAY
     Route: 042
  2. CEFTRIAXONE SODIUM [Suspect]
     Indication: PNEUMONIA
     Dosage: 1 G, 1X/DAY
     Route: 042
  3. CEFTRIAXONE SODIUM [Suspect]
     Dosage: 2 G, 1X/DAY
     Route: 042
  4. TACROLIMUS [Suspect]
     Indication: PROPHYLAXIS AGAINST TRANSPLANT REJECTION
     Dosage: 9MG/DAY
  5. ATORVASTATIN [Concomitant]
     Dosage: 10 MG, 1X/DAY
  6. PREDNISONE [Concomitant]
     Dosage: 5 MG, 1X/DAY
  7. LISINOPRIL [Concomitant]
     Dosage: 10 MG, 1X/DAY
  8. ESTROGENS CONJUGATED [Concomitant]
     Dosage: 2.5 MG, 1X/DAY
  9. SUMATRIPTAN [Concomitant]

REACTIONS (2)
  - DRUG INTERACTION [None]
  - DRUG LEVEL INCREASED [None]
